FAERS Safety Report 9235250 (Version 1)
Quarter: 2013Q2

REPORT INFORMATION
  Report Type: Spontaneous
  Country: CA (occurrence: CA)
  Receive Date: 20130417
  Receipt Date: 20130417
  Transmission Date: 20140414
  Serious: Yes (Hospitalization, Other)
  Sender: FDA-Public Use
  Company Number: CA-PFIZER INC-2013117509

PATIENT
  Age: 80 Year
  Sex: Female

DRUGS (3)
  1. MORPHINE SULFATE [Suspect]
     Indication: PAIN
     Dosage: 5 MG, AS NEEDED
     Route: 065
  2. HYDROMORPHONE [Suspect]
     Indication: BREAKTHROUGH PAIN
     Dosage: UNK
     Route: 065
  3. HYDROMORPHONE [Suspect]
     Indication: PAIN
     Dosage: UNK
     Route: 065

REACTIONS (1)
  - Colonic pseudo-obstruction [Recovering/Resolving]
